FAERS Safety Report 5423980-4 (Version None)
Quarter: 2007Q3

REPORT INFORMATION
  Report Type: 
  Country: None (occurrence: None)
  Receive Date: 20070727
  Receipt Date: 20061003
  Transmission Date: 20080115
  Serious: Yes (Hospitalization)
  Sender: FDA-Public Use
  Company Number: THYM-11053

PATIENT
  Age: 44 Year
  Sex: Female
  Weight: 78.5 kg

DRUGS (10)
  1. THYMOGLOBULIN [Suspect]
     Indication: PROPHYLAXIS AGAINST GRAFT VERSUS HOST DISEASE
     Dosage: 0.5 MG/KG QD IV
     Route: 042
     Dates: start: 20060717, end: 20060717
  2. THYMOGLOBULIN [Suspect]
     Indication: PROPHYLAXIS AGAINST GRAFT VERSUS HOST DISEASE
     Dosage: 2.5 MG/KG QD IV
     Route: 042
     Dates: start: 20060718, end: 20060718
  3. THYMOGLOBULIN [Suspect]
     Indication: PROPHYLAXIS AGAINST GRAFT VERSUS HOST DISEASE
     Dosage: 3 MG/KG QD IV
     Route: 042
     Dates: start: 20060719, end: 20060719
  4. ALEMTAZUMAB [Concomitant]
  5. PREDNISONE [Concomitant]
  6. FLUDARABINE PHOSPHATE [Concomitant]
  7. BUSULFAN [Concomitant]
  8. TACROLIMUS [Concomitant]
  9. METHOTREXATE [Concomitant]
  10. PREDNISONE [Concomitant]

REACTIONS (2)
  - BACTERAEMIA [None]
  - CYSTITIS [None]
